FAERS Safety Report 6297066-3 (Version None)
Quarter: 2009Q3

REPORT INFORMATION
  Report Type: 
  Country: None (occurrence: None)
  Receive Date: 20090804
  Receipt Date: 20090710
  Transmission Date: 20100115
  Serious: Yes (Hospitalization)
  Sender: FDA-Public Use
  Company Number: FR-GENENTECH-238887

PATIENT
  Sex: Female
  Weight: 19.5 kg

DRUGS (8)
  1. RITUXIMAB [Suspect]
     Indication: RHEUMATOID ARTHRITIS
     Dosage: 1000 MG, UNK
     Route: 042
     Dates: start: 20070122
  2. METHOTREXATE [Concomitant]
     Indication: DRUG USE FOR UNKNOWN INDICATION
     Dosage: 56 UNK, 1/WEEK
     Dates: start: 20010101
  3. CORTANCYL [Concomitant]
     Indication: DRUG USE FOR UNKNOWN INDICATION
     Dosage: 8 MG, UNK
     Dates: start: 19960101
  4. MOPRAL [Concomitant]
     Indication: DRUG USE FOR UNKNOWN INDICATION
     Dosage: UNK
     Dates: start: 20080214
  5. FOSAMAX [Concomitant]
     Indication: DRUG USE FOR UNKNOWN INDICATION
     Dosage: UNK
     Dates: start: 20010915
  6. SPECIAFOLDINE [Concomitant]
     Indication: DRUG USE FOR UNKNOWN INDICATION
     Dosage: 10 MG, UNK
     Dates: start: 20050124
  7. FIXICAL [Concomitant]
     Indication: DRUG USE FOR UNKNOWN INDICATION
     Dosage: UNK
     Dates: start: 20060506
  8. OROCAL [Concomitant]
     Indication: DRUG USE FOR UNKNOWN INDICATION
     Dates: start: 20070101

REACTIONS (1)
  - MUSCLE HAEMORRHAGE [None]
